FAERS Safety Report 23502268 (Version 1)
Quarter: 2024Q1

REPORT INFORMATION
  Report Type: Spontaneous
  Country: US (occurrence: US)
  Receive Date: 20240208
  Receipt Date: 20240208
  Transmission Date: 20240409
  Serious: No
  Sender: FDA-Public Use
  Company Number: US-ADMA BIOLOGICS INC.-US-2023ADM000187

PATIENT
  Age: 80 Year
  Sex: Female

DRUGS (1)
  1. BIVIGAM [Suspect]
     Active Substance: HUMAN IMMUNOGLOBULIN G
     Indication: Product used for unknown indication
     Dosage: 2ML OF 30 GM DOSE
     Route: 042
     Dates: start: 20230906, end: 20230906

REACTIONS (5)
  - Flushing [Recovered/Resolved]
  - Rash erythematous [Recovered/Resolved]
  - Muscle spasms [Recovered/Resolved]
  - Dyspnoea [Recovered/Resolved]
  - Injection site pain [Recovered/Resolved]

NARRATIVE: CASE EVENT DATE: 20230906
